FAERS Safety Report 12697946 (Version 8)
Quarter: 2019Q3

REPORT INFORMATION
  Report Type: Spontaneous
  Country: US (occurrence: US)
  Receive Date: 20160830
  Receipt Date: 20190830
  Transmission Date: 20191004
  Serious: Yes (Hospitalization, Congenital Anomaly, Other)
  Sender: FDA-Public Use
  Company Number: PHHY2015US127635

PATIENT
  Sex: Male

DRUGS (3)
  1. ZOFRAN [Suspect]
     Active Substance: ONDANSETRON HYDROCHLORIDE
     Indication: FOETAL EXPOSURE DURING PREGNANCY
     Route: 064
  2. ONDANSETRON DR REDDY [Suspect]
     Active Substance: ONDANSETRON
     Indication: FOETAL EXPOSURE DURING PREGNANCY
     Dosage: MOTHER^S DOSE: 8 MG, QD
     Route: 064
  3. ZOFRAN [Suspect]
     Active Substance: ONDANSETRON HYDROCHLORIDE
     Indication: FOETAL EXPOSURE DURING PREGNANCY
     Dosage: MOTHER^S DOSE: 8 MG ONCE
     Route: 064

REACTIONS (26)
  - Pulmonary artery stenosis congenital [Unknown]
  - Foetal exposure during pregnancy [Unknown]
  - Wheezing [Unknown]
  - Congenital aortic valve incompetence [Unknown]
  - Cardiomyopathy [Unknown]
  - Tachypnoea [Unknown]
  - Rhinorrhoea [Unknown]
  - Rhinitis allergic [Unknown]
  - Heart disease congenital [Unknown]
  - Cough [Unknown]
  - Pyrexia [Unknown]
  - Diarrhoea [Unknown]
  - Left-to-right cardiac shunt [Unknown]
  - Congenital aortic valve stenosis [Unknown]
  - Dyspnoea [Unknown]
  - Right ventricular enlargement [Unknown]
  - Upper respiratory tract infection [Unknown]
  - Nasal congestion [Unknown]
  - Congenital pulmonary artery anomaly [Unknown]
  - Infantile apnoea [Unknown]
  - Cardiomegaly [Unknown]
  - Patent ductus arteriosus [Unknown]
  - Abdominal pain upper [Unknown]
  - Dizziness [Unknown]
  - Atrial septal defect [Unknown]
  - Hypercholesterolaemia [Unknown]
